FAERS Safety Report 15145146 (Version 1)
Quarter: 2018Q3

REPORT INFORMATION
  Report Type: Spontaneous
  Country: US (occurrence: US)
  Receive Date: 20180713
  Receipt Date: 20180713
  Transmission Date: 20181010
  Serious: No
  Sender: FDA-Public Use
  Company Number: US-INTERCEPT-PMOCA2016000146

PATIENT

DRUGS (31)
  1. ONDANSETRON [Concomitant]
     Active Substance: ONDANSETRON
     Dosage: 4 MG, UNK
     Dates: start: 20180301, end: 20180321
  2. DECARA [Concomitant]
     Dosage: 50000 UNK, UNK
     Dates: start: 20171110, end: 20171118
  3. OCALIVA [Suspect]
     Active Substance: OBETICHOLIC ACID
     Dosage: 5 MG, QD
     Route: 048
  4. BENAZEP [Concomitant]
     Dosage: 10?12.5
     Dates: start: 20170928, end: 20171127
  5. PANTOPRAZOLE [Concomitant]
     Active Substance: PANTOPRAZOLE
     Dosage: 40 UNK, UNK
     Dates: start: 20171130, end: 20180129
  6. PANTOPRAZOLE [Concomitant]
     Active Substance: PANTOPRAZOLE
     Dosage: 40 UNK, UNK
     Dates: start: 20180330, end: 20180529
  7. ESTROGEL [Concomitant]
     Active Substance: ESTRADIOL
     Dosage: UNK
     Dates: start: 20180319, end: 20180518
  8. ROSUVASTATIN. [Concomitant]
     Active Substance: ROSUVASTATIN
     Dosage: 10 MG, UNK
     Dates: start: 20171109, end: 20180108
  9. ROSUVASTATIN. [Concomitant]
     Active Substance: ROSUVASTATIN
     Dosage: 10 UNK, UNK
     Dates: start: 20171231, end: 20180410
  10. NITROGLYCERIN. [Concomitant]
     Active Substance: NITROGLYCERIN
  11. BENAZEP [Concomitant]
     Dosage: 10?12.5
     Dates: start: 20171130, end: 20180129
  12. ASPIRIN. [Concomitant]
     Active Substance: ASPIRIN
  13. HYDROXYZINE [Concomitant]
     Active Substance: HYDROXYZINE HYDROCHLORIDE
     Dosage: 25 UNK, UNK
     Dates: start: 20180209, end: 20180410
  14. ROSUVASTATIN. [Concomitant]
     Active Substance: ROSUVASTATIN
     Dosage: 10 UNK, UNK
     Dates: start: 20170911, end: 20171208
  15. DECARA [Concomitant]
     Dosage: 50000 UNK, UNK
     Dates: start: 20170911, end: 20171202
  16. DECARA [Concomitant]
     Dosage: 50000 UNK, UNK
     Dates: start: 20171206, end: 20171214
  17. BENAZEP [Concomitant]
     Dosage: 10?12.5
     Dates: start: 20171027, end: 20171226
  18. PANTOPRAZOLE [Concomitant]
     Active Substance: PANTOPRAZOLE
     Dosage: 40 MG, UNK
     Dates: start: 20170705, end: 20171030
  19. PANTOPRAZOLE [Concomitant]
     Active Substance: PANTOPRAZOLE
     Dosage: 40 UNK, UNK
     Dates: start: 20170927, end: 20171126
  20. PANTOPRAZOLE [Concomitant]
     Active Substance: PANTOPRAZOLE
     Dosage: 40 UNK, UNK
     Dates: start: 20170928, end: 20171127
  21. ESTROGEL [Concomitant]
     Active Substance: ESTRADIOL
     Dosage: UNK
     Dates: start: 20180224, end: 20180425
  22. HYDROXYZINE [Concomitant]
     Active Substance: HYDROXYZINE HYDROCHLORIDE
     Dosage: 25 MG, UNK
     Dates: start: 20180111, end: 20180312
  23. HYDROXYZINE [Concomitant]
     Active Substance: HYDROXYZINE HYDROCHLORIDE
     Dosage: 25 UNK, UNK
     Dates: start: 20180301, end: 20180331
  24. INTRAROSA [Concomitant]
     Active Substance: PRASTERONE
     Dosage: 6.5 MG, UNK
     Dates: start: 20171208, end: 20180507
  25. OCALIVA [Suspect]
     Active Substance: OBETICHOLIC ACID
     Indication: PRIMARY BILIARY CHOLANGITIS
     Dosage: 5 MG, QD
     Route: 048
     Dates: start: 201606
  26. BENAZEP [Concomitant]
     Dosage: 10?12.5
     Dates: start: 20171231, end: 20180425
  27. ROSUVASTATIN. [Concomitant]
     Active Substance: ROSUVASTATIN
     Dosage: 10 MG, UNK
     Dates: start: 20171106, end: 20180105
  28. ROSUVASTATIN. [Concomitant]
     Active Substance: ROSUVASTATIN
     Dosage: 10 UNK, UNK
     Dates: start: 20180312, end: 20180511
  29. BENAZEP [Concomitant]
     Dosage: 10?12.5
     Dates: start: 20180330, end: 20180529
  30. PANTOPRAZOLE [Concomitant]
     Active Substance: PANTOPRAZOLE
     Dosage: 40 UNK, UNK
     Dates: start: 20171027, end: 20171226
  31. PANTOPRAZOLE [Concomitant]
     Active Substance: PANTOPRAZOLE
     Dosage: 40 UNK, UNK
     Dates: start: 20171231, end: 20180425

REACTIONS (2)
  - Drug dose omission [Unknown]
  - Pruritus [Not Recovered/Not Resolved]

NARRATIVE: CASE EVENT DATE: 20161128
